FAERS Safety Report 8245230-6 (Version None)
Quarter: 2012Q1

REPORT INFORMATION
  Report Type: 
  Country: None (occurrence: None)
  Receive Date: 20120329
  Receipt Date: 20120326
  Transmission Date: 20120608
  Serious: Yes (Hospitalization)
  Sender: FDA-Public Use
  Company Number: PHHY2012DE016572

PATIENT
  Sex: Female
  Weight: 39.6 kg

DRUGS (5)
  1. VOTUBIA [Suspect]
     Indication: ASTROCYTOMA, LOW GRADE
     Dosage: 2.5 MG PER DAY
     Route: 048
     Dates: start: 20120111, end: 20120208
  2. OSPOLOT [Concomitant]
     Indication: CONVULSION
     Dosage: 175 MG DAILY
     Route: 048
     Dates: start: 20080801
  3. VOTUBIA [Suspect]
     Dosage: 5 MG PER DAY
     Route: 048
     Dates: start: 20120209, end: 20120223
  4. TEGRETOL [Concomitant]
     Indication: CONVULSION
     Dosage: 100 MG PER DAY
     Route: 048
     Dates: start: 20090301
  5. ERGOCALCIFEROL [Concomitant]
     Indication: VITAMIN D DEFICIENCY
     Dosage: 2000 MG PERDAY
     Route: 048
     Dates: start: 20120110

REACTIONS (2)
  - GRAND MAL CONVULSION [None]
  - EPILEPSY [None]
